FAERS Safety Report 7022065-3 (Version None)
Quarter: 2010Q3

REPORT INFORMATION
  Report Type: 
  Country: None (occurrence: None)
  Receive Date: 20100928
  Receipt Date: 20100916
  Transmission Date: 20110219
  Serious: Yes (Disabling)
  Sender: FDA-Public Use
  Company Number: 2010MA002781

PATIENT
  Sex: Male

DRUGS (8)
  1. ACYCLOVIR [Suspect]
     Dosage: 400 MG;TID;PO
     Route: 048
  2. CEPHALEXIN [Suspect]
     Dosage: 250 MG;BID;PO
     Route: 048
  3. RANITIDINE [Suspect]
     Dosage: 150 MG;BID;PO
     Route: 048
  4. AMLODIPINE BESYLATE [Suspect]
     Dosage: 10 MG;QD;PO
     Route: 048
  5. LOSARTAN POTASSIUM [Suspect]
     Dosage: 50 MG;QD;PO
     Route: 048
  6. MIRTAZAPINE [Suspect]
     Dosage: 45 MG;QD;PO
     Route: 048
  7. SULFATRIM [Suspect]
     Dosage: 480 MG; PO
     Route: 048
  8. FOLIC ACID [Concomitant]

REACTIONS (3)
  - ANAEMIA [None]
  - ARTHRALGIA [None]
  - MYALGIA [None]
